FAERS Safety Report 9349071 (Version 1)
Quarter: 2013Q2

REPORT INFORMATION
  Report Type: Spontaneous
  Country: FR (occurrence: FR)
  Receive Date: 20130614
  Receipt Date: 20130614
  Transmission Date: 20140414
  Serious: Yes (Hospitalization)
  Sender: FDA-Public Use
  Company Number: FR-PFIZER INC-2013122927

PATIENT
  Age: 4 Year
  Sex: Male
  Weight: 17.8 kg

DRUGS (4)
  1. ADVIL [Suspect]
     Indication: EAR INFECTION
     Dosage: 1 DF, SINGLE
     Dates: start: 20130220, end: 20130220
  2. ADVIL [Suspect]
     Indication: HYPERTHERMIA
  3. AMOXICILLIN [Concomitant]
     Indication: EAR INFECTION
     Dosage: UNK
     Dates: start: 20130211
  4. DOLIPRANE [Concomitant]
     Indication: EAR INFECTION
     Dosage: UNK
     Route: 048
     Dates: start: 20130211

REACTIONS (2)
  - Gastric ulcer [Recovered/Resolved]
  - Haematemesis [Recovered/Resolved]
